FAERS Safety Report 21631408 (Version 1)
Quarter: 2022Q4

REPORT INFORMATION
  Report Type: Spontaneous
  Country: IT (occurrence: IT)
  Receive Date: 20221123
  Receipt Date: 20221123
  Transmission Date: 20230113
  Serious: Yes (Death, Other)
  Sender: FDA-Public Use
  Company Number: IT-MYLANLABS-2022M1121768

PATIENT
  Age: 2 Year
  Sex: Male

DRUGS (5)
  1. LEVETIRACETAM [Suspect]
     Active Substance: LEVETIRACETAM
     Indication: Epileptic encephalopathy
     Dosage: UNK
     Route: 065
  2. VALPROATE SODIUM [Suspect]
     Active Substance: VALPROATE SODIUM
     Indication: Epileptic encephalopathy
     Dosage: UNK
     Route: 065
  3. NITRAZEPAM [Suspect]
     Active Substance: NITRAZEPAM
     Indication: Epileptic encephalopathy
     Dosage: UNK
     Route: 065
  4. PHENYTOIN SODIUM [Suspect]
     Active Substance: PHENYTOIN SODIUM
     Indication: Epileptic encephalopathy
     Dosage: UNK
     Route: 065
  5. VIGABATRIN [Suspect]
     Active Substance: VIGABATRIN
     Indication: Epileptic encephalopathy
     Dosage: UNK
     Route: 065

REACTIONS (5)
  - Death [Fatal]
  - Bronchiolitis [Unknown]
  - General physical health deterioration [Unknown]
  - Drug ineffective [Unknown]
  - Upper respiratory tract infection [Unknown]
